FAERS Safety Report 18737167 (Version 1)
Quarter: 2021Q1

REPORT INFORMATION
  Report Type: Other
  Country: JP (occurrence: JP)
  Receive Date: 20210113
  Receipt Date: 20210113
  Transmission Date: 20210419
  Serious: Yes (Hospitalization)
  Sender: FDA-Public Use
  Company Number: JP-UROVANT SCIENCES GMBH-202012-URV-000505

PATIENT

DRUGS (1)
  1. BEOVA TABLETS [Suspect]
     Active Substance: VIBEGRON
     Indication: PRODUCT USED FOR UNKNOWN INDICATION
     Route: 048

REACTIONS (2)
  - Hospitalisation [Unknown]
  - Off label use [Unknown]
